FAERS Safety Report 22133758 (Version 1)
Quarter: 2023Q1

REPORT INFORMATION
  Report Type: Spontaneous
  Country: ES (occurrence: ES)
  Receive Date: 20230324
  Receipt Date: 20230324
  Transmission Date: 20230417
  Serious: Yes (Death)
  Sender: FDA-Public Use
  Company Number: None

PATIENT
  Age: 63 Year
  Sex: Male
  Weight: 124 kg

DRUGS (7)
  1. TREMFYA [Suspect]
     Active Substance: GUSELKUMAB
     Indication: Psoriasis
     Route: 058
     Dates: start: 20190820, end: 20190820
  2. TREMFYA [Suspect]
     Active Substance: GUSELKUMAB
     Route: 058
     Dates: start: 20190723, end: 20190723
  3. ALLOPURINOL [Concomitant]
     Active Substance: ALLOPURINOL
     Indication: Hyperuricaemia
     Route: 048
     Dates: end: 20190912
  4. COLCHICINE [Concomitant]
     Active Substance: COLCHICINE
     Indication: Hyperuricaemia
     Route: 048
     Dates: end: 20190912
  5. ZALDIAR [Concomitant]
     Active Substance: ACETAMINOPHEN\TRAMADOL HYDROCHLORIDE
     Indication: Muscle contracture
     Route: 048
     Dates: start: 20190902, end: 20190912
  6. DIAZEPAM [Concomitant]
     Active Substance: DIAZEPAM
     Indication: Muscle contracture
     Route: 048
     Dates: start: 20190902, end: 20190912
  7. DEXKETOPROFEN TROMETAMOL [Concomitant]
     Active Substance: DEXKETOPROFEN TROMETAMOL
     Indication: Muscle contracture
     Route: 048
     Dates: start: 20190902, end: 20190912

REACTIONS (1)
  - Sudden death [Fatal]

NARRATIVE: CASE EVENT DATE: 20190912
